FAERS Safety Report 6721739-9 (Version None)
Quarter: 2010Q2

REPORT INFORMATION
  Report Type: 
  Country: None (occurrence: None)
  Receive Date: 20100512
  Receipt Date: 20100512
  Transmission Date: 20101027
  Serious: Yes (Disabling)
  Sender: FDA-Public Use
  Company Number: None

PATIENT
  Age: 3 Year
  Sex: Female
  Weight: 17.6903 kg

DRUGS (5)
  1. ZYRTEC ALLERGY [Suspect]
     Indication: MULTIPLE ALLERGIES
     Dosage: 5MG DAILY ORALLY
     Route: 048
  2. SINGULAIR [Concomitant]
  3. ZOPENX [Concomitant]
  4. NEB. TREATMENTS [Concomitant]
  5. MULTI-VITAMIN [Concomitant]

REACTIONS (2)
  - ASTHMA [None]
  - CONDITION AGGRAVATED [None]
